FAERS Safety Report 14141486 (Version 3)
Quarter: 2017Q4

REPORT INFORMATION
  Report Type: Spontaneous
  Country: US (occurrence: US)
  Receive Date: 20171030
  Receipt Date: 20171031
  Transmission Date: 20180321
  Serious: No
  Sender: FDA-Public Use
  Company Number: US-VIIV HEALTHCARE LIMITED-US2017165074

PATIENT
  Sex: Male

DRUGS (3)
  1. VITAMIN C [Concomitant]
     Active Substance: ASCORBIC ACID
  2. TRIUMEQ [Suspect]
     Active Substance: ABACAVIR SULFATE\DOLUTEGRAVIR SODIUM\LAMIVUDINE
     Indication: PRODUCT USED FOR UNKNOWN INDICATION
     Dosage: UNK UNK, 1D
     Route: 048
     Dates: start: 201704
  3. VALTREX [Concomitant]
     Active Substance: VALACYCLOVIR HYDROCHLORIDE

REACTIONS (8)
  - Somnolence [Unknown]
  - Mobility decreased [Unknown]
  - Muscle atrophy [Recovering/Resolving]
  - Fat tissue decreased [Recovering/Resolving]
  - Enzyme level abnormal [Recovering/Resolving]
  - Arthropathy [Unknown]
  - Asthenia [Recovering/Resolving]
  - Muscle disorder [Recovering/Resolving]
